FAERS Safety Report 14866658 (Version 5)
Quarter: 2019Q2

REPORT INFORMATION
  Report Type: Spontaneous
  Country: US (occurrence: US)
  Receive Date: 20180508
  Receipt Date: 20190620
  Transmission Date: 20190711
  Serious: Yes (Other)
  Sender: FDA-Public Use
  Company Number: US-ASTRAZENECA-2018SE54119

PATIENT
  Age: 24748 Day
  Sex: Male
  Weight: 82.6 kg

DRUGS (130)
  1. ALCLOMETASONE [Concomitant]
     Active Substance: ALCLOMETASONE
     Indication: SKIN IRRITATION
  2. ASPIRIN. [Concomitant]
     Active Substance: ASPIRIN
     Indication: CARDIAC DISORDER
  3. COLYTE [Concomitant]
     Active Substance: POLYETHYLENE GLYCOL 3350\POTASSIUM CHLORIDE\SODIUM BICARBONATE\SODIUM CHLORIDE\SODIUM SULFATE ANHYDROUS
     Indication: CONSTIPATION
  4. DOXAZOSIN [Concomitant]
     Active Substance: DOXAZOSIN\DOXAZOSIN MESYLATE
     Indication: HYPERTENSION
  5. FERROUS SULFATE. [Concomitant]
     Active Substance: FERROUS SULFATE
     Indication: THROMBOCYTOPENIA
  6. KETOCONAZOLE. [Concomitant]
     Active Substance: KETOCONAZOLE
  7. LOVASTATIN. [Concomitant]
     Active Substance: LOVASTATIN
  8. MAGNESIUM OXIDE. [Concomitant]
     Active Substance: MAGNESIUM OXIDE
  9. MEMANTINE. [Concomitant]
     Active Substance: MEMANTINE
  10. TACROLIMUS. [Concomitant]
     Active Substance: TACROLIMUS
  11. TRAZODONE [Concomitant]
     Active Substance: TRAZODONE HYDROCHLORIDE
  12. IRON [Concomitant]
     Active Substance: IRON
  13. GABAPENTIN. [Concomitant]
     Active Substance: GABAPENTIN
  14. FUROSEMIDE. [Concomitant]
     Active Substance: FUROSEMIDE
  15. GLIMEPIRIDE. [Concomitant]
     Active Substance: GLIMEPIRIDE
  16. LOVASTATIN. [Concomitant]
     Active Substance: LOVASTATIN
  17. NEXIUM [Suspect]
     Active Substance: ESOMEPRAZOLE MAGNESIUM
     Indication: GASTROOESOPHAGEAL REFLUX DISEASE
     Route: 048
     Dates: start: 2007, end: 2016
  18. NEXIUM [Suspect]
     Active Substance: ESOMEPRAZOLE MAGNESIUM
     Indication: GASTROOESOPHAGEAL REFLUX DISEASE
     Dosage: GENERIC
     Route: 048
     Dates: start: 20130919
  19. ALLOPURINOL. [Concomitant]
     Active Substance: ALLOPURINOL
     Indication: GOUT
  20. CEPHALEXIN. [Concomitant]
     Active Substance: CEPHALEXIN
     Indication: ANTIBIOTIC PROPHYLAXIS
  21. COLESTIPOL [Concomitant]
     Active Substance: COLESTIPOL
     Indication: HYPERTENSION
  22. DOXYCYCLINE HYCLATE. [Concomitant]
     Active Substance: DOXYCYCLINE HYCLATE
     Indication: HYPERTENSION
  23. HYDROCODONE-ACETAMINOPHEN [Concomitant]
     Active Substance: ACETAMINOPHEN\HYDROCODONE
     Indication: ANALGESIC THERAPY
  24. LISINOPRIL. [Concomitant]
     Active Substance: LISINOPRIL
  25. METFORMIN [Concomitant]
     Active Substance: METFORMIN HYDROCHLORIDE
     Indication: DIABETES MELLITUS
  26. NORTRIPTYLINE [Concomitant]
     Active Substance: NORTRIPTYLINE
  27. PENICILLIN [Concomitant]
     Active Substance: PENICILLIN
     Indication: INFECTION
  28. TOPIRAMATE. [Concomitant]
     Active Substance: TOPIRAMATE
  29. TRIAMCINOLONE [Concomitant]
     Active Substance: TRIAMCINOLONE
  30. ZOLPIDEM [Concomitant]
     Active Substance: ZOLPIDEM\ZOLPIDEM TARTRATE
     Indication: INSOMNIA
  31. TURMERIC [Concomitant]
     Active Substance: HERBALS\TURMERIC
  32. NITROGLYCERIN. [Concomitant]
     Active Substance: NITROGLYCERIN
  33. THIAMINE. [Concomitant]
     Active Substance: THIAMINE
  34. KETOCONAZOLE. [Concomitant]
     Active Substance: KETOCONAZOLE
  35. ALLOPURINOL. [Concomitant]
     Active Substance: ALLOPURINOL
  36. NAPROXEN. [Concomitant]
     Active Substance: NAPROXEN
  37. MONTELUKAST [Concomitant]
     Active Substance: MONTELUKAST SODIUM
  38. ACYCLOVIR. [Concomitant]
     Active Substance: ACYCLOVIR
  39. AMLODIPINE BESYLATE. [Concomitant]
     Active Substance: AMLODIPINE BESYLATE
     Indication: HYPERTENSION
  40. FERROUS SULFATE. [Concomitant]
     Active Substance: FERROUS SULFATE
     Indication: ANAEMIA
  41. GENERLAC [Concomitant]
     Active Substance: LACTULOSE
     Indication: CONSTIPATION
  42. LAMIVUDINE. [Concomitant]
     Active Substance: LAMIVUDINE
  43. MECLIZINE [Concomitant]
     Active Substance: MECLIZINE HYDROCHLORIDE
     Indication: VERTIGO
  44. METOCLOPRAMIDE. [Concomitant]
     Active Substance: METOCLOPRAMIDE
     Indication: IMPAIRED GASTRIC EMPTYING
  45. PRANDIN [Concomitant]
     Active Substance: REPAGLINIDE
  46. PROMETHAZINE [Concomitant]
     Active Substance: PROMETHAZINE\PROMETHAZINE HYDROCHLORIDE
  47. PROPRANOLOL [Concomitant]
     Active Substance: PROPRANOLOL HYDROCHLORIDE
  48. RIFAMPIN. [Concomitant]
     Active Substance: RIFAMPIN
  49. ERGOCALCIFEROL. [Concomitant]
     Active Substance: ERGOCALCIFEROL
  50. LAMIVUDINE. [Concomitant]
     Active Substance: LAMIVUDINE
  51. MYCOPHENOLATE SODIUM [Concomitant]
     Active Substance: MYCOPHENOLATE SODIUM
  52. NORTRIPTYLINE [Concomitant]
     Active Substance: NORTRIPTYLINE
  53. AMLODIPINE [Concomitant]
     Active Substance: AMLODIPINE BESYLATE
  54. OMEPRAZOLE. [Suspect]
     Active Substance: OMEPRAZOLE
     Indication: GASTROOESOPHAGEAL REFLUX DISEASE
     Route: 065
     Dates: start: 2010
  55. CIPROFLOXACIN. [Concomitant]
     Active Substance: CIPROFLOXACIN
     Indication: INFECTION
  56. COLCRYS [Concomitant]
     Active Substance: COLCHICINE
     Indication: GOUT
  57. DESONIDE. [Concomitant]
     Active Substance: DESONIDE
     Indication: RASH
  58. FLUTICASONE. [Concomitant]
     Active Substance: FLUTICASONE
  59. JANUVIA [Concomitant]
     Active Substance: SITAGLIPTIN PHOSPHATE
     Indication: DIABETES MELLITUS
  60. METOPROLOL TARTRATE. [Concomitant]
     Active Substance: METOPROLOL TARTRATE
  61. NAPROXEN. [Concomitant]
     Active Substance: NAPROXEN
  62. OXYCODONE [Concomitant]
     Active Substance: OXYCODONE
  63. POTASSIUM CHLORIDE. [Concomitant]
     Active Substance: POTASSIUM CHLORIDE
     Indication: NUTRITIONAL SUPPLEMENTATION
  64. TIZANIDINE. [Concomitant]
     Active Substance: TIZANIDINE
  65. LOVASTATIN. [Concomitant]
     Active Substance: LOVASTATIN
  66. NYSTATIN. [Concomitant]
     Active Substance: NYSTATIN
  67. ERGOCALCIFEROL. [Concomitant]
     Active Substance: ERGOCALCIFEROL
  68. TROSPIUM [Concomitant]
     Active Substance: TROSPIUM
  69. LANTUS [Concomitant]
     Active Substance: INSULIN GLARGINE
  70. LAMIVUDINE. [Concomitant]
     Active Substance: LAMIVUDINE
  71. TRAZODONE [Concomitant]
     Active Substance: TRAZODONE HYDROCHLORIDE
  72. ADVICOR [Concomitant]
     Active Substance: LOVASTATIN\NIACIN
     Indication: HYPERLIPIDAEMIA
  73. ATORVASTATIN [Concomitant]
     Active Substance: ATORVASTATIN
     Indication: HYPERLIPIDAEMIA
  74. DUREZOL [Concomitant]
     Active Substance: DIFLUPREDNATE
     Indication: EYE IRRITATION
  75. FUROSEMIDE. [Concomitant]
     Active Substance: FUROSEMIDE
     Indication: FLUID RETENTION
  76. SULFAMETHOXAZOLE-TRIMETHOPRIM [Concomitant]
     Active Substance: SULFAMETHOXAZOLE\TRIMETHOPRIM
  77. VITAMIN C [Concomitant]
     Active Substance: ASCORBIC ACID
  78. NYSTATIN. [Concomitant]
     Active Substance: NYSTATIN
  79. DOXAZOSIN [Concomitant]
     Active Substance: DOXAZOSIN\DOXAZOSIN MESYLATE
  80. NEXIUM [Suspect]
     Active Substance: ESOMEPRAZOLE MAGNESIUM
     Indication: GASTROOESOPHAGEAL REFLUX DISEASE
     Dosage: GENERIC
     Route: 065
     Dates: start: 2016
  81. NEXIUM [Suspect]
     Active Substance: ESOMEPRAZOLE MAGNESIUM
     Indication: GASTROOESOPHAGEAL REFLUX DISEASE
     Dosage: ESOMEPRAZOLE
     Route: 048
  82. CHLORHEXIDINE [Concomitant]
     Active Substance: CHLORHEXIDINE
  83. COLCHICINE. [Concomitant]
     Active Substance: COLCHICINE
     Indication: GOUT
  84. GLYBURIDE. [Concomitant]
     Active Substance: GLYBURIDE
     Indication: DIABETES MELLITUS
  85. MECLIZINE [Concomitant]
     Active Substance: MECLIZINE HYDROCHLORIDE
     Indication: MOTION SICKNESS
  86. MOMETASONE [Concomitant]
     Active Substance: MOMETASONE
  87. NIASPAN [Concomitant]
     Active Substance: NIACIN
     Indication: HYPERLIPIDAEMIA
  88. OXYBUTYNIN. [Concomitant]
     Active Substance: OXYBUTYNIN CHLORIDE
  89. PAROXETIN [Concomitant]
     Active Substance: PAROXETINE HYDROCHLORIDE
     Indication: DEPRESSION
  90. PREDNISONE. [Concomitant]
     Active Substance: PREDNISONE
  91. RANITIDINE. [Concomitant]
     Active Substance: RANITIDINE
  92. SERTRALINE [Concomitant]
     Active Substance: SERTRALINE HYDROCHLORIDE
  93. OXYCODONE [Concomitant]
     Active Substance: OXYCODONE
  94. ACETAMINOPHEN-CODIENE [Concomitant]
     Indication: ANALGESIC THERAPY
  95. DONEPEZIL. [Concomitant]
     Active Substance: DONEPEZIL
  96. ENALAPRIL [Concomitant]
     Active Substance: ENALAPRIL
     Indication: HYPERTENSION
  97. FLOMAX [Concomitant]
     Active Substance: TAMSULOSIN HYDROCHLORIDE
     Indication: URINARY RETENTION
  98. GLIMEPIRIDE. [Concomitant]
     Active Substance: GLIMEPIRIDE
     Indication: DIABETES MELLITUS
  99. HYDROCHLOROTHIAZIDE. [Concomitant]
     Active Substance: HYDROCHLOROTHIAZIDE
     Indication: HYPERTENSION
  100. METHYLPREDNISOLONE. [Concomitant]
     Active Substance: METHYLPREDNISOLONE
  101. METOCLOPRAMIDE. [Concomitant]
     Active Substance: METOCLOPRAMIDE
     Indication: GASTROOESOPHAGEAL REFLUX DISEASE
  102. MONTELUKAST [Concomitant]
     Active Substance: MONTELUKAST SODIUM
  103. ONDANSETRON [Concomitant]
     Active Substance: ONDANSETRON
  104. PROPOXYPHENE-ACETAMINOPHEN [Concomitant]
  105. TAMSULOSIN [Concomitant]
     Active Substance: TAMSULOSIN
  106. VIAGRA [Concomitant]
     Active Substance: SILDENAFIL CITRATE
     Indication: ERECTILE DYSFUNCTION
  107. CALCIUM [Concomitant]
     Active Substance: CALCIUM
  108. ERGOCALCIFEROL. [Concomitant]
     Active Substance: ERGOCALCIFEROL
  109. PROPRANOLOL [Concomitant]
     Active Substance: PROPRANOLOL HYDROCHLORIDE
  110. DONEPEZIL. [Concomitant]
     Active Substance: DONEPEZIL
  111. FINASTERIDE. [Concomitant]
     Active Substance: FINASTERIDE
  112. FLUTICASONE. [Concomitant]
     Active Substance: FLUTICASONE
  113. NAPROXEN. [Concomitant]
     Active Substance: NAPROXEN
  114. APIDRA [Concomitant]
     Active Substance: INSULIN GLULISINE
  115. VALCYTE [Concomitant]
     Active Substance: VALGANCICLOVIR HYDROCHLORIDE
  116. NEXIUM [Suspect]
     Active Substance: ESOMEPRAZOLE MAGNESIUM
     Indication: GASTROOESOPHAGEAL REFLUX DISEASE
     Route: 048
     Dates: start: 2007, end: 2016
  117. NEXIUM [Suspect]
     Active Substance: ESOMEPRAZOLE MAGNESIUM
     Indication: GASTROOESOPHAGEAL REFLUX DISEASE
     Route: 048
     Dates: start: 20170223
  118. ADVAIR DISKUS [Concomitant]
     Active Substance: FLUTICASONE PROPIONATE\SALMETEROL XINAFOATE
  119. AMOXICILLIN. [Concomitant]
     Active Substance: AMOXICILLIN
     Indication: INFECTION
  120. DIPHENOXYLATE-ATROPINE [Concomitant]
     Active Substance: ATROPINE\DIPHENOXYLATE
     Indication: DIARRHOEA
  121. GABAPENTIN. [Concomitant]
     Active Substance: GABAPENTIN
     Indication: ANALGESIC THERAPY
  122. MUPIROCIN. [Concomitant]
     Active Substance: MUPIROCIN
  123. SPIRONOLACTONE. [Concomitant]
     Active Substance: SPIRONOLACTONE
  124. XIFAXAN [Concomitant]
     Active Substance: RIFAXIMIN
  125. ERGOCALCIFEROL. [Concomitant]
     Active Substance: ERGOCALCIFEROL
  126. RIFAXIMIN. [Concomitant]
     Active Substance: RIFAXIMIN
  127. SPIRONOLACTONE. [Concomitant]
     Active Substance: SPIRONOLACTONE
  128. FERROUS FUMARATE [Concomitant]
     Active Substance: FERROUS FUMARATE
  129. PANTOPRAZOLE [Concomitant]
     Active Substance: PANTOPRAZOLE
  130. SERTRALINE [Concomitant]
     Active Substance: SERTRALINE HYDROCHLORIDE

REACTIONS (4)
  - Gout [Unknown]
  - Chronic kidney disease [Not Recovered/Not Resolved]
  - Acute kidney injury [Recovered/Resolved]
  - Renal failure [Unknown]

NARRATIVE: CASE EVENT DATE: 20130513
